FAERS Safety Report 9912047 (Version 1)
Quarter: 2014Q1

REPORT INFORMATION
  Report Type: Spontaneous
  Country: US (occurrence: US)
  Receive Date: 20140219
  Receipt Date: 20140219
  Transmission Date: 20141002
  Serious: Yes (Other)
  Sender: FDA-Public Use
  Company Number: US-BAXTER-2014BAX007529

PATIENT
  Age: 26 Year
  Sex: Male

DRUGS (1)
  1. GAMMAGARD LIQUID [Suspect]
     Indication: ANAEMIA
     Route: 042

REACTIONS (4)
  - Anaemia [Unknown]
  - Lymphoproliferative disorder [Unknown]
  - Aplastic anaemia [Unknown]
  - Lymphopenia [Unknown]
